FAERS Safety Report 8933266 (Version 1)
Quarter: 2012Q4

REPORT INFORMATION
  Report Type: 
  Country: US (occurrence: US)
  Receive Date: 20121128
  Receipt Date: 20121128
  Transmission Date: 20130627
  Serious: No
  Sender: FDA-Public Use
  Company Number: US-ASTRAZENECA-2012SE85928

PATIENT
  Age: 61 Year
  Sex: Male
  Weight: 98.4 kg

DRUGS (2)
  1. CRESTOR [Suspect]
     Indication: BLOOD CHOLESTEROL ABNORMAL
     Route: 048
     Dates: start: 201210
  2. BABY ASPIRIN [Concomitant]
     Indication: PROPHYLAXIS

REACTIONS (1)
  - Erectile dysfunction [Not Recovered/Not Resolved]
